FAERS Safety Report 9935166 (Version 1)
Quarter: 2014Q1

REPORT INFORMATION
  Report Type: Spontaneous
  Country: FR (occurrence: FR)
  Receive Date: 20140228
  Receipt Date: 20140228
  Transmission Date: 20141002
  Serious: Yes (Hospitalization)
  Sender: FDA-Public Use
  Company Number: FR-PFIZER INC-2014054909

PATIENT
  Age: 67 Year
  Sex: Male

DRUGS (10)
  1. AMLOR [Suspect]
     Dosage: 5 MG, 1X/DAY
  2. AMOXICILLIN AND CLAVULANIC ACID [Suspect]
     Dosage: 2 DF (500MG/62.5 G), 3X/DAY
     Dates: start: 20140108, end: 20140113
  3. INEXIUM [Suspect]
     Dosage: 20 MG, 1X/DAY
     Route: 048
  4. STILNOX [Suspect]
     Dosage: 10 MG, 1X/DAY
  5. ACUPAN [Concomitant]
     Dosage: 20MG/2ML
  6. LYRICA [Concomitant]
     Dosage: 50 MG, UNK
  7. MOVICOL [Concomitant]
     Dosage: UNK
  8. ARTISIAL [Concomitant]
     Dosage: UNK
  9. OXYNORM [Concomitant]
     Dosage: 5 MG, UNK
  10. DUROGESIC [Concomitant]
     Dosage: 50UG/H

REACTIONS (3)
  - Cholestasis [Recovered/Resolved]
  - Hepatocellular injury [Recovering/Resolving]
  - Renal failure acute [Recovering/Resolving]
